FAERS Safety Report 7265771-8 (Version None)
Quarter: 2011Q1

REPORT INFORMATION
  Report Type: 
  Country: None (occurrence: None)
  Receive Date: 20110131
  Receipt Date: 20110121
  Transmission Date: 20110831
  Serious: Yes (Life-Threatening, Hospitalization)
  Sender: FDA-Public Use
  Company Number: FR-PFIZER INC-FR-WYE-G04361309

PATIENT
  Age: 31 Year
  Sex: Female
  Weight: 57 kg

DRUGS (2)
  1. EFFEXOR XR [Suspect]
     Indication: POSTPARTUM DEPRESSION
     Dosage: 75 MG, 1X/DAY, REPORTEDLY TAKEN REGULARLY
     Route: 048
     Dates: start: 20071001, end: 20090625
  2. DOLIPRANE [Concomitant]
     Indication: MIGRAINE
     Dosage: 2 DF/DAY MAXIMUM BUT PRESCRIBED TILL 3G/DAY
     Route: 048

REACTIONS (5)
  - HEPATITIS FULMINANT [None]
  - LIPASE INCREASED [None]
  - BLOOD POTASSIUM DECREASED [None]
  - ASTHENIA [None]
  - TREMOR [None]
